FAERS Safety Report 17661766 (Version 2)
Quarter: 2020Q2

REPORT INFORMATION
  Report Type: Spontaneous
  Country: HR (occurrence: HR)
  Receive Date: 20200413
  Receipt Date: 20200423
  Transmission Date: 20200713
  Serious: Yes (Other)
  Sender: FDA-Public Use
  Company Number: HR-PFIZER INC-2020150771

PATIENT
  Age: 76 Year
  Sex: Female
  Weight: 62 kg

DRUGS (8)
  1. KISQALI [Interacting]
     Active Substance: RIBOCICLIB
     Indication: BREAST CANCER
     Dosage: 600 MG, 1X/DAY
     Route: 048
     Dates: start: 20180911
  2. PRAXITEN [Concomitant]
     Active Substance: OXAZEPAM
     Dosage: 15 MG, 1X/DAY
     Route: 048
  3. KETONAL [KETOPROFEN] [Concomitant]
     Active Substance: KETOPROFEN
     Route: 048
  4. EXEMESTANE. [Interacting]
     Active Substance: EXEMESTANE
     Dosage: 25 MG, 1X/DAY
     Route: 048
     Dates: start: 20180829
  5. RISBON [Concomitant]
     Active Substance: RISEDRONIC ACID
     Dosage: 75 MG, 1X/DAY
     Route: 048
  6. CONCOR [Concomitant]
     Active Substance: BISOPROLOL FUMARATE
     Route: 048
  7. EXEMESTANE. [Suspect]
     Active Substance: EXEMESTANE
     Indication: BREAST CANCER
     Dosage: 25 MG, 1X/DAY
     Route: 048
     Dates: start: 20180829
  8. KISQALI [Interacting]
     Active Substance: RIBOCICLIB
     Dosage: 600 MG, 1X/DAY
     Route: 048
     Dates: start: 20180911

REACTIONS (3)
  - Drug interaction [Unknown]
  - Neutropenia [Recovered/Resolved]
  - Neutropenia [Recovered/Resolved]

NARRATIVE: CASE EVENT DATE: 20181009
